FAERS Safety Report 4919942-3 (Version None)
Quarter: 2006Q1

REPORT INFORMATION
  Report Type: 
  Country: None (occurrence: None)
  Receive Date: 20060223
  Receipt Date: 20050926
  Transmission Date: 20060701
  Serious: Yes (Other)
  Sender: FDA-Public Use
  Company Number: PHEH2005US10695

PATIENT
  Age: 60 Year
  Sex: Female

DRUGS (16)
  1. AREDIA [Suspect]
     Dosage: UNK, UNK
     Dates: start: 19990101, end: 20030101
  2. ZOMETA [Suspect]
     Indication: METASTASES TO BONE
     Dosage: 4 MG, UNK
     Route: 042
     Dates: start: 20030101, end: 20040923
  3. FEMARA [Concomitant]
     Indication: BREAST CANCER
     Dosage: 2.5 MG, QD
     Dates: start: 20021001, end: 20041001
  4. HERCEPTIN ^HOFFMANN-LA ROCHE^ [Concomitant]
     Indication: BREAST CANCER
     Dosage: UNK, UNK
     Dates: start: 19990101, end: 20021001
  5. TAXOTERE [Concomitant]
     Indication: BREAST CANCER
     Dosage: UNK, UNK
     Dates: start: 19990101, end: 20021001
  6. EPOGEN [Concomitant]
     Indication: ANAEMIA
  7. ARANESP [Concomitant]
     Indication: ANAEMIA
  8. DIOVAN [Concomitant]
     Indication: HYPERTENSION
     Dates: start: 20031201
  9. TOPROL-XL [Concomitant]
     Dates: start: 20040301
  10. AMBIEN [Concomitant]
  11. LIDODERM [Concomitant]
     Route: 062
  12. ACCUPRIL [Concomitant]
     Indication: HYPERTENSION
     Dates: end: 20031201
  13. ROXICET [Concomitant]
  14. FAMVIR /UNK/ [Concomitant]
     Indication: HERPES ZOSTER
     Dates: start: 20040401
  15. PREDNISONE [Concomitant]
     Indication: HERPES ZOSTER
     Dates: start: 20040401
  16. ELAVIL [Concomitant]
     Indication: FACIAL PAIN
     Dates: start: 20040101

REACTIONS (31)
  - ABSCESS ORAL [None]
  - ALPHA HAEMOLYTIC STREPTOCOCCAL INFECTION [None]
  - ANAEMIA [None]
  - BONE DISORDER [None]
  - BONE TRIMMING [None]
  - COUGH [None]
  - ENDODONTIC PROCEDURE [None]
  - FACIAL PAIN [None]
  - FATIGUE [None]
  - FISTULA [None]
  - HERPES ZOSTER [None]
  - HYPOAESTHESIA [None]
  - INFLAMMATION [None]
  - MANDIBULECTOMY [None]
  - MASTICATION DISORDER [None]
  - MOUTH ULCERATION [None]
  - ORTHOSTATIC HYPOTENSION [None]
  - OSTEOMYELITIS [None]
  - OSTEONECROSIS [None]
  - PAIN IN JAW [None]
  - PRIMARY SEQUESTRUM [None]
  - PROSTHESIS IMPLANTATION [None]
  - PULPITIS DENTAL [None]
  - SENSITIVITY OF TEETH [None]
  - SEQUESTRECTOMY [None]
  - TOOTH EXTRACTION [None]
  - TOOTH FRACTURE [None]
  - TOOTHACHE [None]
  - TRIGEMINAL NEURALGIA [None]
  - UPPER RESPIRATORY TRACT INFECTION [None]
  - WOUND INFECTION [None]
